FAERS Safety Report 6217933-6 (Version None)
Quarter: 2009Q2

REPORT INFORMATION
  Report Type: 
  Country: None (occurrence: None)
  Receive Date: 20090604
  Receipt Date: 20090604
  Transmission Date: 20091009
  Serious: Yes (Other)
  Sender: FDA-Public Use
  Company Number: None

PATIENT
  Age: 33 Year
  Sex: Male
  Weight: 90.7194 kg

DRUGS (2)
  1. PROAIR HFA [Suspect]
     Indication: ASTHMA
     Dosage: FEW PUFFS 2XDAY INHAL
     Route: 055
     Dates: start: 20090602, end: 20090603
  2. PROAIR HFA [Suspect]
     Indication: ASTHMA
     Dates: start: 20090602, end: 20090603

REACTIONS (2)
  - DRUG INEFFECTIVE [None]
  - HEADACHE [None]
